FAERS Safety Report 4726970-X (Version None)
Quarter: 2005Q3

REPORT INFORMATION
  Report Type: 
  Country: None (occurrence: None)
  Receive Date: 20050728
  Receipt Date: 20050426
  Transmission Date: 20060218
  Serious: Yes (Death, Hospitalization, Other)
  Sender: FDA-Public Use
  Company Number: US-BRISTOL-MYERS SQUIBB COMPANY-12947750

PATIENT
  Age: 76 Year
  Sex: Male

DRUGS (2)
  1. CETUXIMAB [Suspect]
     Indication: COLORECTAL CANCER METASTATIC
     Dosage: INITIAL TX DATE: 08-NOV-04. PT HAD REC'D 7 CYCLES PRIOR TO EVENT.
     Route: 042
     Dates: start: 20050329, end: 20050329
  2. IRINOTECAN [Suspect]
     Indication: COLORECTAL CANCER METASTATIC
     Dosage: INITIAL TX DATE: 08-NOV-04.  PT HAD REC'D 7 CYCLES PRIOR TO THE EVENT.
     Route: 042
     Dates: start: 20050315, end: 20050315

REACTIONS (4)
  - ASCITES [None]
  - MALIGNANT NEOPLASM PROGRESSION [None]
  - PLEURAL EFFUSION [None]
  - RESPIRATORY FAILURE [None]
